FAERS Safety Report 12364678 (Version 1)
Quarter: 2016Q2

REPORT INFORMATION
  Report Type: Spontaneous
  Country: US (occurrence: None)
  Receive Date: 20160512
  Receipt Date: 20160512
  Transmission Date: 20160815
  Serious: Yes (Disabling, Other)
  Sender: FDA-Public Use
  Company Number: None

PATIENT
  Age: 58 Year
  Sex: Female
  Weight: 58.97 kg

DRUGS (4)
  1. GADOLINIUM [Suspect]
     Active Substance: GADOLINIUM
     Indication: SCAN WITH CONTRAST
     Dates: start: 20160126, end: 20160126
  2. IRON (OTC) [Concomitant]
  3. TYLENOL [Concomitant]
     Active Substance: ACETAMINOPHEN
  4. MULTI VIT. [Concomitant]

REACTIONS (8)
  - Body temperature decreased [None]
  - Vision blurred [None]
  - Tendon pain [None]
  - Pain in extremity [None]
  - Headache [None]
  - Depression [None]
  - Myalgia [None]
  - Confusional state [None]

NARRATIVE: CASE EVENT DATE: 20160126
